FAERS Safety Report 9860108 (Version 1)
Quarter: 2014Q1

REPORT INFORMATION
  Report Type: Spontaneous
  Country: AU (occurrence: AU)
  Receive Date: 20140201
  Receipt Date: 20140201
  Transmission Date: 20141002
  Serious: Yes (Death, Other)
  Sender: FDA-Public Use
  Company Number: AU-ROXANE LABORATORIES, INC.-2014-RO-00108RO

PATIENT
  Age: 42 Year
  Sex: Female

DRUGS (21)
  1. MERCAPTOPURINE [Suspect]
     Indication: CROHN^S DISEASE
  2. PREDNISONE [Suspect]
     Indication: LYMPHOPROLIFERATIVE DISORDER
  3. PREDNISONE [Suspect]
     Indication: EPSTEIN-BARR VIRUS INFECTION
  4. CYCLOPHOSPHAMIDE TABLETS USP [Suspect]
     Indication: LYMPHOPROLIFERATIVE DISORDER
  5. CYCLOPHOSPHAMIDE TABLETS USP [Suspect]
     Indication: EPSTEIN-BARR VIRUS INFECTION
  6. DEXAMETHASONE [Suspect]
     Indication: LYMPHOPROLIFERATIVE DISORDER
  7. DEXAMETHASONE [Suspect]
     Indication: EPSTEIN-BARR VIRUS INFECTION
  8. INTERFERON [Suspect]
     Indication: LYMPHOPROLIFERATIVE DISORDER
  9. INTERFERON [Suspect]
     Indication: EPSTEIN-BARR VIRUS INFECTION
  10. RITUXIMAB [Suspect]
     Indication: LYMPHOPROLIFERATIVE DISORDER
  11. RITUXIMAB [Suspect]
     Indication: EPSTEIN-BARR VIRUS INFECTION
  12. ETOPOSIDE [Suspect]
     Indication: LYMPHOPROLIFERATIVE DISORDER
  13. ETOPOSIDE [Suspect]
     Indication: EPSTEIN-BARR VIRUS INFECTION
  14. VINCRISTINE [Suspect]
     Indication: LYMPHOPROLIFERATIVE DISORDER
  15. VINCRISTINE [Suspect]
     Indication: EPSTEIN-BARR VIRUS INFECTION
  16. DOXORUBICIN [Suspect]
     Indication: LYMPHOPROLIFERATIVE DISORDER
  17. DOXORUBICIN [Suspect]
     Indication: EPSTEIN-BARR VIRUS INFECTION
  18. CYTOSINE ARABINOSIDE [Suspect]
     Indication: LYMPHOPROLIFERATIVE DISORDER
  19. CYTOSINE ARABINOSIDE [Suspect]
     Indication: EPSTEIN-BARR VIRUS INFECTION
  20. METHOTREXATE [Suspect]
     Indication: LYMPHOPROLIFERATIVE DISORDER
  21. METHOTREXATE [Suspect]
     Indication: EPSTEIN-BARR VIRUS INFECTION

REACTIONS (8)
  - Lymphoproliferative disorder [Fatal]
  - Epstein-Barr virus infection [Fatal]
  - Dysphagia [Unknown]
  - Cranial nerve palsies multiple [Unknown]
  - Deep vein thrombosis [Unknown]
  - Fall [Unknown]
  - Malnutrition [Unknown]
  - Sepsis [Unknown]
